FAERS Safety Report 4290421-2 (Version None)
Quarter: 2004Q1

REPORT INFORMATION
  Report Type: 
  Country: None (occurrence: None)
  Receive Date: 20040126
  Receipt Date: 20031110
  Transmission Date: 20041129
  Serious: No
  Sender: FDA-Public Use
  Company Number: USA030948093

PATIENT
  Age: 66 Year
  Sex: Female
  Weight: 65.318 kg

DRUGS (1)
  1. FORTEO [Suspect]

REACTIONS (4)
  - ABNORMAL DREAMS [None]
  - HYPERHIDROSIS [None]
  - MUSCLE CRAMP [None]
  - PAIN IN EXTREMITY [None]
